FAERS Safety Report 9887842 (Version 1)
Quarter: 2014Q1

REPORT INFORMATION
  Report Type: Report from Study
  Country: BR (occurrence: BR)
  Receive Date: 20140211
  Receipt Date: 20140211
  Transmission Date: 20141002
  Serious: Yes (Other)
  Sender: FDA-Public Use
  Company Number: PHHY2014BR016458

PATIENT
  Age: 61 Year
  Sex: Female
  Weight: 88 kg

DRUGS (4)
  1. ACLASTA [Suspect]
     Indication: OSTEOPOROSIS
     Dosage: 5 MG, UNK
     Route: 042
     Dates: start: 2011
  2. ACLASTA [Suspect]
     Dosage: 5 MG, UNK
     Route: 042
     Dates: start: 20121109
  3. ATACAND [Concomitant]
     Indication: BLOOD PRESSURE INCREASED
     Dosage: 1 DF, QD
     Route: 048
  4. LEXAPRO [Concomitant]
     Indication: DEPRESSION
     Dosage: 1 DF, QD
     Route: 048

REACTIONS (1)
  - Neoplasm [Recovered/Resolved]
